FAERS Safety Report 5331699-3 (Version None)
Quarter: 2007Q2

REPORT INFORMATION
  Report Type: 
  Country: None (occurrence: None)
  Receive Date: 20070516
  Receipt Date: 20070504
  Transmission Date: 20071010
  Serious: Yes (Other)
  Sender: FDA-Public Use
  Company Number: 4595

PATIENT
  Age: 17 Year
  Sex: Male

DRUGS (3)
  1. AMNESTEEM [Suspect]
     Indication: ACNE
     Dosage: 20 MG, TID, PO
     Route: 048
     Dates: start: 20070216, end: 20070409
  2. ADDERALL 10 [Concomitant]
  3. LEXAPRO [Concomitant]

REACTIONS (3)
  - AGGRESSION [None]
  - DEPRESSION [None]
  - SUICIDAL IDEATION [None]
